FAERS Safety Report 26045317 (Version 1)
Quarter: 2025Q4

REPORT INFORMATION
  Report Type: Report from Study
  Country: US (occurrence: US)
  Receive Date: 20251114
  Receipt Date: 20251114
  Transmission Date: 20260117
  Serious: Yes (Hospitalization)
  Sender: ALEXION PHARMACEUTICALS
  Company Number: US-AstraZeneca-CH-00990738A

PATIENT
  Age: 83 Year
  Sex: Female

DRUGS (1)
  1. ACALABRUTINIB [Suspect]
     Active Substance: ACALABRUTINIB
     Indication: Chronic lymphocytic leukaemia
     Dosage: 100 MILLIGRAM, BID
     Dates: start: 20210901

REACTIONS (6)
  - Product dose omission issue [Unknown]
  - Nasopharyngitis [Unknown]
  - Pneumonia [Unknown]
  - Urinary tract infection [Unknown]
  - Cystitis [Unknown]
  - White blood cell count abnormal [Unknown]
